FAERS Safety Report 9321114 (Version 2)
Quarter: 2013Q3

REPORT INFORMATION
  Report Type: Report from Study
  Country: GB (occurrence: None)
  Receive Date: 20130528
  Receipt Date: 20130701
  Transmission Date: 20140515
  Serious: Yes (Hospitalization)
  Sender: FDA-Public Use
  Company Number: AG-2013-1836

PATIENT
  Age: 67 Year
  Sex: Female
  Weight: 62.4 kg

DRUGS (9)
  1. CHLORAMBUCIL (CHLORAMBUCIL) (UNKNOWN) [Suspect]
     Indication: CHRONIC LYMPHOCYTIC LEUKAEMIA
     Dosage: 112 MG CUMULATIVE DOSE
     Route: 048
     Dates: start: 20130416, end: 20130422
  2. OFATUMUMAB [Suspect]
     Indication: CHRONIC LYMPHOCYTIC LEUKAEMIA
     Dosage: 1000 MG, CYCLICAL
     Route: 042
     Dates: start: 20130423
  3. ALLOPURINOL [Concomitant]
  4. PARACETAMOL [Concomitant]
  5. PREDNISOLONE [Concomitant]
  6. G-CSF (COLONY STIMULATING FACTORS) [Concomitant]
  7. METHYLPREDNISOLONE (METHYLPREDNISOLONE) [Concomitant]
  8. METOCLOPRAMIDE [Concomitant]
  9. ACICLOVIR [Concomitant]

REACTIONS (1)
  - Infection [None]
